FAERS Safety Report 6635722-5 (Version None)
Quarter: 2010Q1

REPORT INFORMATION
  Report Type: 
  Country: None (occurrence: None)
  Receive Date: 20100311
  Receipt Date: 20100311
  Transmission Date: 20100710
  Serious: Yes (Hospitalization)
  Sender: FDA-Public Use
  Company Number: None

PATIENT
  Sex: Male

DRUGS (9)
  1. DIPHENHYDRAMINE 25MG UNKNOWN [Suspect]
     Indication: INSOMNIA
     Dosage: ^SEVERAL CAPSULES^ ONCE PO
     Route: 048
     Dates: start: 20090106, end: 20090106
  2. PREDNISONE TAB [Concomitant]
  3. METOPROLOL TARTRATE [Concomitant]
  4. ALLOPURINOL [Concomitant]
  5. LISINOPRIL [Concomitant]
  6. CALCIUM ACETATE [Concomitant]
  7. CALCITRIOL [Concomitant]
  8. RANITIDINE [Concomitant]
  9. BACTRIM [Concomitant]

REACTIONS (7)
  - AGITATION [None]
  - HALLUCINATIONS, MIXED [None]
  - IRRITABILITY [None]
  - MENTAL STATUS CHANGES [None]
  - OVERDOSE [None]
  - PSYCHOTIC DISORDER [None]
  - RESTLESSNESS [None]
